FAERS Safety Report 8084993-X (Version None)
Quarter: 2012Q1

REPORT INFORMATION
  Report Type: 
  Country: None (occurrence: None)
  Receive Date: 20120128
  Receipt Date: 20110331
  Transmission Date: 20120608
  Serious: No
  Sender: FDA-Public Use
  Company Number: US-ABBOTT-11P-163-0716183-00

PATIENT
  Age: 44 Year
  Sex: Male

DRUGS (3)
  1. UNKNOWN PAIN MEDICATION [Concomitant]
     Indication: PAIN
  2. LEVOTHYROXINE SODIUM [Concomitant]
     Indication: HYPOTHYROIDISM
  3. HUMIRA [Suspect]
     Indication: PSORIATIC ARTHROPATHY
     Dates: start: 20090901

REACTIONS (5)
  - INFERTILITY [None]
  - POOR QUALITY DRUG ADMINISTERED [None]
  - THERAPEUTIC RESPONSE DECREASED [None]
  - INCORRECT STORAGE OF DRUG [None]
  - PSORIASIS [None]
